FAERS Safety Report 12361741 (Version 1)
Quarter: 2016Q2

REPORT INFORMATION
  Report Type: Spontaneous
  Country: US (occurrence: US)
  Receive Date: 20160512
  Receipt Date: 20160512
  Transmission Date: 20160815
  Serious: No
  Sender: FDA-Public Use
  Company Number: US-SA-2016SA080396

PATIENT
  Sex: Female

DRUGS (12)
  1. JANUVIA [Concomitant]
     Active Substance: SITAGLIPTIN PHOSPHATE
  2. ZETIA [Concomitant]
     Active Substance: EZETIMIBE
  3. AMLODIPINE [Concomitant]
     Active Substance: AMLODIPINE BESYLATE
  4. ISOSORBIDE MONONITRATE. [Concomitant]
     Active Substance: ISOSORBIDE MONONITRATE
  5. LISINOPRIL. [Concomitant]
     Active Substance: LISINOPRIL
  6. LANTUS SOLOSTAR [Concomitant]
     Active Substance: INSULIN GLARGINE
  7. FLEXPEN [Concomitant]
     Active Substance: UNSPECIFIED INGREDIENT
  8. PRALUENT [Suspect]
     Active Substance: ALIROCUMAB
     Route: 065
  9. CARVEDILOL. [Concomitant]
     Active Substance: CARVEDILOL
  10. NOVOLOG [Concomitant]
     Active Substance: INSULIN ASPART
  11. ALIROCUMAB PREFILLED PEN [Concomitant]
     Active Substance: ALIROCUMAB
  12. SOLOSTAR [Concomitant]
     Active Substance: DEVICE

REACTIONS (2)
  - Feeling abnormal [Unknown]
  - Dysphagia [Unknown]
